FAERS Safety Report 5917469-3 (Version None)
Quarter: 2008Q4

REPORT INFORMATION
  Report Type: 
  Country: None (occurrence: None)
  Receive Date: 20081009
  Receipt Date: 20081009
  Transmission Date: 20090506
  Serious: Yes (Other)
  Sender: FDA-Public Use
  Company Number: None

PATIENT
  Age: 53 Year
  Sex: Female
  Weight: 79.3795 kg

DRUGS (2)
  1. TOPROL-XL [Suspect]
     Indication: HYPERTENSION
     Dosage: 50MG 1 PER DAY PO
     Route: 048
     Dates: start: 20020524, end: 20081008
  2. TOPROL-XL [Suspect]
     Indication: SYNCOPE
     Dosage: 50MG 1 PER DAY PO
     Route: 048
     Dates: start: 20020524, end: 20081008

REACTIONS (6)
  - ASTHENIA [None]
  - CONVULSION [None]
  - DIZZINESS [None]
  - EYE MOVEMENT DISORDER [None]
  - FATIGUE [None]
  - FEELING ABNORMAL [None]
